FAERS Safety Report 18673639 (Version 1)
Quarter: 2020Q4

REPORT INFORMATION
  Report Type: Report from Study
  Country: IT (occurrence: IT)
  Receive Date: 20201228
  Receipt Date: 20201228
  Transmission Date: 20210114
  Serious: Yes (Hospitalization)
  Sender: FDA-Public Use
  Company Number: IT-INCYTE CORPORATION-2018IN013531

PATIENT

DRUGS (3)
  1. JAKAVI [Suspect]
     Active Substance: RUXOLITINIB
     Indication: MYELOFIBROSIS
     Dosage: 30 MG, QD
     Route: 065
     Dates: start: 20171115, end: 20180501
  2. JAKAVI [Suspect]
     Active Substance: RUXOLITINIB
     Dosage: 40 MG
     Route: 065
     Dates: start: 20180502
  3. EPARINA [Concomitant]
     Indication: PRODUCT USED FOR UNKNOWN INDICATION
     Dosage: 0.4 OT
     Route: 048
     Dates: start: 20190409, end: 20190509

REACTIONS (5)
  - Osteoarthritis [Unknown]
  - Skin disorder [Unknown]
  - Arthritis [Recovered/Resolved]
  - Neoplasm [Unknown]
  - Dysplastic naevus [Unknown]

NARRATIVE: CASE EVENT DATE: 20180809
